FAERS Safety Report 13752497 (Version 1)
Quarter: 2017Q3

REPORT INFORMATION
  Report Type: Report from Study
  Country: US (occurrence: BR)
  Receive Date: 20170713
  Receipt Date: 20170713
  Transmission Date: 20171127
  Serious: Yes (Other)
  Sender: FDA-Public Use
  Company Number: US-SUNOVION-2017SUN003091

PATIENT
  Sex: Male
  Weight: 100 kg

DRUGS (2)
  1. INDACATEROL AND GLYCOPYRROLATE [Suspect]
     Active Substance: GLYCOPYRROLATE\INDACATEROL MALEATE
     Indication: OXYGEN SATURATION DECREASED
     Dosage: 1 DF (110/50UG), QD
     Route: 055
  2. ANTIBIOTICS [Concomitant]
     Active Substance: UNSPECIFIED INGREDIENT
     Dosage: UNK

REACTIONS (3)
  - Product use in unapproved indication [Unknown]
  - Dry mouth [Unknown]
  - Diabetes mellitus [Unknown]
